FAERS Safety Report 7809795-8 (Version None)
Quarter: 2011Q4

REPORT INFORMATION
  Report Type: 
  Country: None (occurrence: None)
  Receive Date: 20111012
  Receipt Date: 20111003
  Transmission Date: 20120403
  Serious: Yes (Hospitalization, Other)
  Sender: FDA-Public Use
  Company Number: US-BAYER-2011-096249

PATIENT
  Age: 27 Year
  Sex: Female
  Weight: 117.91 kg

DRUGS (5)
  1. YASMIN [Suspect]
     Indication: CONTRACEPTION
     Dosage: UNK
     Route: 048
     Dates: start: 20070301, end: 20070901
  2. VISTARIL [Concomitant]
  3. PROMETHAZINE [Concomitant]
     Dosage: 25 MG, Q4HR
     Route: 048
     Dates: start: 20071112
  4. PROMETHAZINE [Concomitant]
     Dosage: 25 MG, QID
     Route: 048
     Dates: start: 20071112
  5. PONSTEL [Concomitant]

REACTIONS (5)
  - DISCOMFORT [None]
  - GALLBLADDER DISORDER [None]
  - PAIN [None]
  - ANXIETY [None]
  - CHOLECYSTITIS CHRONIC [None]
